FAERS Safety Report 8317768-4 (Version None)
Quarter: 2012Q2

REPORT INFORMATION
  Report Type: 
  Country: None (occurrence: None)
  Receive Date: 20120427
  Receipt Date: 20120413
  Transmission Date: 20120825
  Serious: Yes (Hospitalization, Other)
  Sender: FDA-Public Use
  Company Number: US-MYLANLABS-2009AC000024

PATIENT
  Age: 57 Year
  Sex: Male
  Weight: 102 kg

DRUGS (24)
  1. PROTONIX [Concomitant]
  2. LASIX [Concomitant]
  3. DICYCLOMINE [Concomitant]
  4. RESTORIL [Concomitant]
  5. VASOTEC [Concomitant]
  6. POTASSIUM CHLORIDE [Concomitant]
  7. DIGOXIN [Suspect]
     Indication: ATRIAL FIBRILLATION
     Route: 048
     Dates: start: 20010329, end: 20090618
  8. ATENOLOL [Concomitant]
  9. COUMADIN [Concomitant]
  10. FOLIC ACID [Concomitant]
  11. MULTI-VITAMIN [Concomitant]
  12. XANAX [Concomitant]
  13. AUGMENTIN '125' [Concomitant]
  14. BENTYL [Concomitant]
  15. FLOMAX [Concomitant]
  16. IRON SULFATETHIAMIN COMPOUND TAB [Concomitant]
  17. TYLENOL [Concomitant]
  18. LEVAQUIN [Concomitant]
  19. CITRUCEL [Concomitant]
  20. SIMVASTATIN [Concomitant]
  21. SPIRONOLACTONE [Concomitant]
  22. ASCORBIC ACID [Concomitant]
  23. CORDARONE [Concomitant]
  24. ZYRTEC [Concomitant]

REACTIONS (59)
  - SUPRAVENTRICULAR TACHYARRHYTHMIA [None]
  - ATRIAL FLUTTER [None]
  - ROTATOR CUFF SYNDROME [None]
  - INSOMNIA [None]
  - HYPERTENSION [None]
  - HEART VALVE REPLACEMENT [None]
  - NIGHT SWEATS [None]
  - DYSPNOEA EXERTIONAL [None]
  - PRODUCTIVE COUGH [None]
  - DIARRHOEA [None]
  - MITRAL VALVE INCOMPETENCE [None]
  - AORTIC DISORDER [None]
  - MITRAL VALVE REPLACEMENT [None]
  - ATRIOVENTRICULAR BLOCK FIRST DEGREE [None]
  - LEFT VENTRICULAR HYPERTROPHY [None]
  - PLEURAL EFFUSION [None]
  - CHEST X-RAY ABNORMAL [None]
  - NOCTURIA [None]
  - ONYCHOMYCOSIS [None]
  - STRESS [None]
  - MITRAL VALVE DISEASE [None]
  - ANXIETY [None]
  - FLATULENCE [None]
  - HYPERLIPIDAEMIA [None]
  - LABORATORY TEST ABNORMAL [None]
  - NASAL CONGESTION [None]
  - HAEMOLYSIS [None]
  - DYSURIA [None]
  - NAUSEA [None]
  - POLLAKIURIA [None]
  - MARFAN'S SYNDROME [None]
  - AORTIC ANEURYSM [None]
  - PERICARDIAL EFFUSION [None]
  - DYSPNOEA [None]
  - CARPAL TUNNEL SYNDROME [None]
  - UPPER-AIRWAY COUGH SYNDROME [None]
  - VENTRICULAR EXTRASYSTOLES [None]
  - INJURY [None]
  - OEDEMA PERIPHERAL [None]
  - PALPITATIONS [None]
  - DYSLIPIDAEMIA [None]
  - CARDIAC VALVE DISEASE [None]
  - CHEST DISCOMFORT [None]
  - FATIGUE [None]
  - FLANK PAIN [None]
  - TACHYCARDIA [None]
  - ANAEMIA [None]
  - IRRITABLE BOWEL SYNDROME [None]
  - CARDIAC FAILURE [None]
  - CARDIOMEGALY [None]
  - PULMONARY OEDEMA [None]
  - AORTIC VALVE REPLACEMENT [None]
  - ASTHENIA [None]
  - ELECTROCARDIOGRAM AMBULATORY ABNORMAL [None]
  - ATRIAL FIBRILLATION [None]
  - ECHOCARDIOGRAM ABNORMAL [None]
  - ELECTROCARDIOGRAM ABNORMAL [None]
  - HYPERHIDROSIS [None]
  - SINUS TACHYCARDIA [None]
